FAERS Safety Report 13921976 (Version 2)
Quarter: 2017Q4

REPORT INFORMATION
  Report Type: Report from Study
  Country: US (occurrence: US)
  Receive Date: 20170830
  Receipt Date: 20171018
  Transmission Date: 20180320
  Serious: Yes (Other)
  Sender: FDA-Public Use
  Company Number: US-GILEAD-2017-0291096

PATIENT
  Age: 68 Year
  Sex: Female

DRUGS (5)
  1. REVATIO [Concomitant]
     Active Substance: SILDENAFIL CITRATE
  2. OXYGEN. [Concomitant]
     Active Substance: OXYGEN
  3. XARELTO [Concomitant]
     Active Substance: RIVAROXABAN
  4. AMBRISENTAN [Suspect]
     Active Substance: AMBRISENTAN
     Indication: PRODUCT USED FOR UNKNOWN INDICATION
     Dosage: 10 MG, QD
     Route: 065
     Dates: start: 20110531
  5. SILDENAFIL CITRATE. [Concomitant]
     Active Substance: SILDENAFIL CITRATE

REACTIONS (16)
  - Atrial fibrillation [Not Recovered/Not Resolved]
  - Cough [Unknown]
  - Dizziness [Unknown]
  - Choking [Unknown]
  - Limb injury [Unknown]
  - Peripheral swelling [Not Recovered/Not Resolved]
  - Unevaluable event [Unknown]
  - Dyspnoea [Unknown]
  - Weight decreased [Unknown]
  - Chest pain [Unknown]
  - Oedema [Unknown]
  - Presyncope [Unknown]
  - Rib fracture [Unknown]
  - Fall [Unknown]
  - Fatigue [Unknown]
  - Joint injury [Unknown]
